FAERS Safety Report 4543809-6 (Version None)
Quarter: 2004Q4

REPORT INFORMATION
  Report Type: 
  Country: None (occurrence: None)
  Receive Date: 20041229
  Receipt Date: 20041229
  Transmission Date: 20050328
  Serious: Yes (Life-Threatening, Hospitalization)
  Sender: FDA-Public Use
  Company Number: None

PATIENT
  Age: 68 Year
  Sex: Female
  Weight: 79.3795 kg

DRUGS (2)
  1. VIOXX [Suspect]
     Indication: ARTHRITIS
     Dates: start: 19990101
  2. CELEBREX [Suspect]
     Indication: ARTHRITIS
     Dates: start: 20010101

REACTIONS (2)
  - CARDIAC DISORDER [None]
  - DRUG HYPERSENSITIVITY [None]
